FAERS Safety Report 14806326 (Version 1)
Quarter: 2018Q2

REPORT INFORMATION
  Report Type: Report from Study
  Country: US (occurrence: US)
  Receive Date: 20180425
  Receipt Date: 20180425
  Transmission Date: 20180711
  Serious: No
  Sender: FDA-Public Use
  Company Number: PHHY2018US069222

PATIENT
  Age: 34 Year
  Sex: Female

DRUGS (1)
  1. GILENYA [Suspect]
     Active Substance: FINGOLIMOD HYDROCHLORIDE
     Indication: MULTIPLE SCLEROSIS
     Dosage: UNK, QD
     Route: 048

REACTIONS (5)
  - Pollakiuria [Unknown]
  - Concomitant disease aggravated [Unknown]
  - Central nervous system lesion [Unknown]
  - Vertebral lesion [Unknown]
  - Ear pain [Unknown]

NARRATIVE: CASE EVENT DATE: 20160318
